FAERS Safety Report 8151656-1 (Version None)
Quarter: 2012Q1

REPORT INFORMATION
  Report Type: 
  Country: None (occurrence: None)
  Receive Date: 20120220
  Receipt Date: 20120215
  Transmission Date: 20120608
  Serious: Yes (Hospitalization, Other)
  Sender: FDA-Public Use
  Company Number: US-AMGEN-USASP2011043442

PATIENT
  Age: 48 Year
  Sex: Male
  Weight: 83.9 kg

DRUGS (3)
  1. ENBREL [Suspect]
     Indication: PSORIASIS
     Dosage: 50 MG, QWK
     Route: 058
     Dates: start: 20050308, end: 20101202
  2. ENBREL [Suspect]
     Dosage: 50 MG, QWK
     Dates: start: 20050315, end: 20111204
  3. SIMVASTATIN [Concomitant]
     Dosage: 20 MG, UNK
     Dates: start: 20040130

REACTIONS (3)
  - PSORIASIS [None]
  - PROSTATE CANCER [None]
  - PROSTATIC SPECIFIC ANTIGEN INCREASED [None]
